FAERS Safety Report 20454062 (Version 3)
Quarter: 2022Q1

REPORT INFORMATION
  Report Type: Spontaneous
  Country: JP (occurrence: JP)
  Receive Date: 20220210
  Receipt Date: 20220319
  Transmission Date: 20220424
  Serious: Yes (Life-Threatening, Other)
  Sender: FDA-Public Use
  Company Number: JP-BAXTER-2022BAX002795

PATIENT
  Age: 33 Year
  Sex: Female

DRUGS (3)
  1. IFEX [Suspect]
     Active Substance: IFOSFAMIDE
     Indication: Natural killer-cell leukaemia
     Dosage: ICE THERAPY
     Route: 065
  2. ETOPOSIDE [Suspect]
     Active Substance: ETOPOSIDE
     Indication: Natural killer-cell leukaemia
     Dosage: ICE THERAPY
     Route: 065
  3. CISPLATIN [Suspect]
     Active Substance: CISPLATIN
     Indication: Natural killer-cell leukaemia
     Dosage: ICE THERAPY
     Route: 065

REACTIONS (4)
  - Oligohydramnios [Unknown]
  - Placental insufficiency [Unknown]
  - Maternal drugs affecting foetus [Unknown]
  - Foetal growth restriction [Unknown]
